FAERS Safety Report 16779973 (Version 1)
Quarter: 2019Q3

REPORT INFORMATION
  Report Type: Spontaneous
  Country: JP (occurrence: JP)
  Receive Date: 20190906
  Receipt Date: 20190906
  Transmission Date: 20191005
  Serious: Yes (Death, Other)
  Sender: FDA-Public Use
  Company Number: GXJP2019JP001582

PATIENT
  Age: 74 Year
  Sex: Female

DRUGS (2)
  1. ETOPOSIDE. [Suspect]
     Active Substance: ETOPOSIDE
     Indication: NEUROENDOCRINE CARCINOMA OF THE SKIN
     Dosage: 70 MG/M2, Q21D
     Route: 065
  2. CARBOPLATIN. [Suspect]
     Active Substance: CARBOPLATIN
     Indication: NEUROENDOCRINE CARCINOMA OF THE SKIN
     Dosage: UNK
     Route: 065

REACTIONS (7)
  - Product use in unapproved indication [Unknown]
  - Bone marrow failure [Unknown]
  - Bone marrow infiltration [Unknown]
  - Metastases to breast [Fatal]
  - Neutrophil count decreased [Unknown]
  - Alopecia [Unknown]
  - Platelet count decreased [Unknown]
